FAERS Safety Report 6955028-4 (Version None)
Quarter: 2010Q3

REPORT INFORMATION
  Report Type: 
  Country: None (occurrence: None)
  Receive Date: 20100830
  Receipt Date: 20100819
  Transmission Date: 20110219
  Serious: Yes (Death, Hospitalization)
  Sender: FDA-Public Use
  Company Number: FR-NOVOPROD-278993

PATIENT
  Sex: Female

DRUGS (2)
  1. ACTRAPID [Suspect]
     Indication: DIABETES MELLITUS
  2. INSULATARD FLEXPEN [Suspect]
     Indication: DIABETES MELLITUS
     Route: 064

REACTIONS (1)
  - ABORTION INDUCED [None]
